FAERS Safety Report 5747090-1 (Version None)
Quarter: 2008Q2

REPORT INFORMATION
  Report Type: 
  Country: None (occurrence: None)
  Receive Date: 20080522
  Receipt Date: 20080515
  Transmission Date: 20081010
  Serious: Yes (Hospitalization)
  Sender: FDA-Public Use
  Company Number: DE-BOEHRINGER INGELHEIM GMBH, GERMANY-2008-DE-02527DE

PATIENT
  Sex: Female
  Weight: 49 kg

DRUGS (4)
  1. AGGRENOX [Suspect]
     Indication: CEREBROVASCULAR ACCIDENT
     Route: 048
  2. CONCOR PLUS [Concomitant]
  3. EUTHYROX [Concomitant]
  4. OMEPRAZOLE [Concomitant]

REACTIONS (4)
  - CONFUSIONAL STATE [None]
  - DEHYDRATION [None]
  - GASTROENTERITIS VIRAL [None]
  - HYPOKALAEMIA [None]
